FAERS Safety Report 6194301-7 (Version None)
Quarter: 2009Q2

REPORT INFORMATION
  Report Type: 
  Country: None (occurrence: None)
  Receive Date: 20090519
  Receipt Date: 20090513
  Transmission Date: 20091009
  Serious: Yes (Life-Threatening)
  Sender: FDA-Public Use
  Company Number: CH-BRISTOL-MYERS SQUIBB COMPANY-14625495

PATIENT
  Age: 37 Year
  Sex: Male
  Weight: 80 kg

DRUGS (6)
  1. CEENU CAPS 40 MG [Suspect]
     Indication: BRAIN NEOPLASM MALIGNANT
     Dosage: START DATE 28JAN09
     Route: 048
     Dates: start: 20090211, end: 20090211
  2. AVASTIN [Interacting]
     Indication: BRAIN NEOPLASM MALIGNANT
     Dosage: STR: 400MG/16ML INJEKTIONSLOESU, 25MG/ML
     Route: 040
     Dates: start: 20090128
  3. SOLU-MEDROL [Concomitant]
     Indication: PREMEDICATION
     Route: 040
  4. ZOFRAN [Concomitant]
     Indication: PREMEDICATION
     Dosage: FILM COATED TABS. STR: 8MG
     Route: 048
  5. LAMICTAL [Concomitant]
     Indication: EPILEPSY
     Dosage: STR: 100MG TAB
     Route: 048
  6. MOTILIUM [Concomitant]
     Dosage: FILM COATED TABS. STR: 10MG
     Route: 048

REACTIONS (4)
  - DRUG TOXICITY [None]
  - HAEMATOMA [None]
  - MEDICATION ERROR [None]
  - PANCYTOPENIA [None]
